FAERS Safety Report 8235058-5 (Version None)
Quarter: 2012Q1

REPORT INFORMATION
  Report Type: 
  Country: None (occurrence: None)
  Receive Date: 20120326
  Receipt Date: 20120221
  Transmission Date: 20120608
  Serious: Yes (Other)
  Sender: FDA-Public Use
  Company Number: IL-GLAXOSMITHKLINE-B0783307A

PATIENT
  Age: 82 Year
  Sex: Male

DRUGS (1)
  1. REQUIP [Suspect]
     Indication: PARKINSONISM
     Dosage: 4MG PER DAY
     Route: 065
     Dates: start: 20120211, end: 20120218

REACTIONS (3)
  - MEMORY IMPAIRMENT [None]
  - JUDGEMENT IMPAIRED [None]
  - CONFUSIONAL STATE [None]
